FAERS Safety Report 25971027 (Version 1)
Quarter: 2025Q4

REPORT INFORMATION
  Report Type: Spontaneous
  Country: US (occurrence: None)
  Receive Date: 20251028
  Receipt Date: 20251028
  Transmission Date: 20260118
  Serious: No
  Sender: FDA-CTU
  Company Number: None

PATIENT
  Sex: Female

DRUGS (1)
  1. RAGWITEK [Suspect]
     Active Substance: AMBROSIA ARTEMISIIFOLIA POLLEN
     Dosage: DILY SUBLINGUAL
     Route: 060

REACTIONS (4)
  - Swollen tongue [None]
  - Tongue pruritus [None]
  - Paraesthesia oral [None]
  - Hyperaesthesia teeth [None]
